FAERS Safety Report 24704388 (Version 3)
Quarter: 2025Q1

REPORT INFORMATION
  Report Type: Spontaneous
  Country: BE (occurrence: BE)
  Receive Date: 20241206
  Receipt Date: 20250128
  Transmission Date: 20250408
  Serious: Yes (Hospitalization)
  Sender: SANOFI AVENTIS
  Company Number: BE-SA-2024SA359518

PATIENT
  Age: 30 Year
  Sex: Male

DRUGS (7)
  1. DUPIXENT [Suspect]
     Active Substance: DUPILUMAB
     Indication: Dermatitis atopic
     Dosage: 300 MG, QOW
     Route: 058
     Dates: start: 20231201, end: 20241115
  2. NOVORAPID [Concomitant]
     Active Substance: INSULIN ASPART
  3. TOUJEO [Concomitant]
     Active Substance: INSULIN GLARGINE
  4. MESALAMINE [Concomitant]
     Active Substance: MESALAMINE
  5. LEVOCETIRIZINE DIHYDROCHLORIDE [Concomitant]
     Active Substance: LEVOCETIRIZINE DIHYDROCHLORIDE
  6. TRAZODONE [Concomitant]
     Active Substance: TRAZODONE HYDROCHLORIDE
  7. PANTOPRAZOLE [Concomitant]
     Active Substance: PANTOPRAZOLE

REACTIONS (6)
  - Electrolyte imbalance [Recovered/Resolved]
  - Duodenitis [Recovered/Resolved]
  - Lymphadenopathy [Recovered/Resolved]
  - Diarrhoea [Recovered/Resolved]
  - Eosinophilia [Recovered/Resolved]
  - Rash [Recovered/Resolved]

NARRATIVE: CASE EVENT DATE: 20241021
